FAERS Safety Report 6302881-3 (Version None)
Quarter: 2009Q3

REPORT INFORMATION
  Report Type: 
  Country: None (occurrence: None)
  Receive Date: 20090810
  Receipt Date: 20090801
  Transmission Date: 20100115
  Serious: Yes (Other)
  Sender: FDA-Public Use
  Company Number: US-AVENTIS-200916799US

PATIENT
  Sex: Male

DRUGS (5)
  1. LANTUS [Suspect]
     Route: 058
     Dates: start: 20080101
  2. OPTICLIK (INSULIN INJECTION PEN) [Suspect]
     Dates: start: 20080101
  3. PLAVIX [Concomitant]
     Dosage: DOSE: 1 TAB
  4. ASPIRIN [Concomitant]
     Dosage: DOSE: 1 TAB
  5. NOVOLOG [Concomitant]
     Dosage: DOSE: PER SLIDING SCALE WITH MEALS

REACTIONS (1)
  - LEG AMPUTATION [None]
